FAERS Safety Report 19478543 (Version 3)
Quarter: 2021Q3

REPORT INFORMATION
  Report Type: Spontaneous
  Country: US (occurrence: US)
  Receive Date: 20210630
  Receipt Date: 20210723
  Transmission Date: 20211014
  Serious: Yes (Other)
  Sender: FDA-Public Use
  Company Number: US-JNJFOC-20210661461

PATIENT
  Age: 22 Year
  Sex: Male

DRUGS (13)
  1. RISPERDAL CONSTA [Suspect]
     Active Substance: RISPERIDONE
  2. RISPERDAL CONSTA [Suspect]
     Active Substance: RISPERIDONE
  3. RISPERDAL [Suspect]
     Active Substance: RISPERIDONE
     Indication: SCHIZOPHRENIA
     Route: 048
     Dates: start: 20181128
  4. ATARAX [Concomitant]
     Active Substance: HYDROXYZINE HYDROCHLORIDE
     Indication: PRURITUS
     Dosage: AS NEEDED
     Route: 048
  5. DESYREL [Concomitant]
     Active Substance: TRAZODONE HYDROCHLORIDE
     Indication: SLEEP DISORDER
     Dosage: AS NEEDED
     Route: 048
  6. INVEGA SUSTENNA [Suspect]
     Active Substance: PALIPERIDONE PALMITATE
     Route: 030
     Dates: start: 20210523
  7. INVEGA SUSTENNA [Suspect]
     Active Substance: PALIPERIDONE PALMITATE
  8. INVEGA [Suspect]
     Active Substance: PALIPERIDONE
     Indication: SCHIZOPHRENIA
     Route: 048
     Dates: start: 20181128
  9. ABILIFY [Concomitant]
     Active Substance: ARIPIPRAZOLE
  10. INVEGA SUSTENNA [Suspect]
     Active Substance: PALIPERIDONE PALMITATE
     Indication: SCHIZOPHRENIA
     Dosage: DELTOID INJECTION
     Route: 030
     Dates: start: 20181128, end: 20190601
  11. RISPERDAL CONSTA [Suspect]
     Active Substance: RISPERIDONE
  12. ATARAX [Concomitant]
     Active Substance: HYDROXYZINE HYDROCHLORIDE
     Indication: ANXIETY
  13. RISPERDAL CONSTA [Suspect]
     Active Substance: RISPERIDONE
     Indication: SCHIZOPHRENIA
     Route: 030

REACTIONS (11)
  - Syncope [Unknown]
  - Cholecystitis [Recovered/Resolved]
  - Adverse drug reaction [Unknown]
  - Suicidal ideation [Unknown]
  - Tachycardia [Not Recovered/Not Resolved]
  - Weight increased [Unknown]
  - Incision site swelling [Unknown]
  - Cholelithiasis [Recovered/Resolved]
  - Tardive dyskinesia [Not Recovered/Not Resolved]
  - Sciatica [Unknown]
  - Product administration error [Unknown]

NARRATIVE: CASE EVENT DATE: 20181128
